FAERS Safety Report 5615826-6 (Version None)
Quarter: 2008Q1

REPORT INFORMATION
  Report Type: 
  Country: None (occurrence: None)
  Receive Date: 20080206
  Receipt Date: 20080125
  Transmission Date: 20080703
  Serious: Yes (Death)
  Sender: FDA-Public Use
  Company Number: US-ELI_LILLY_AND_COMPANY-US200801005799

PATIENT
  Age: 55 Year
  Sex: Female

DRUGS (3)
  1. CYMBALTA [Suspect]
     Indication: DEPRESSION
     Dosage: 1 D/F, UNK
     Dates: start: 20070601
  2. FENTANYL [Interacting]
     Dosage: 75 MG, UNK
     Dates: start: 20070917, end: 20070918
  3. FENTANYL [Interacting]
     Dosage: 100 MG, UNK
     Dates: start: 20070919

REACTIONS (1)
  - DRUG INTERACTION [None]
